FAERS Safety Report 8577358-5 (Version None)
Quarter: 2012Q3

REPORT INFORMATION
  Report Type: 
  Country: None (occurrence: None)
  Receive Date: 20120807
  Receipt Date: 20120416
  Transmission Date: 20120928
  Serious: Yes (Other)
  Sender: FDA-Public Use
  Company Number: CHPA2012US015451

PATIENT
  Age: 70 Year
  Sex: Female

DRUGS (2)
  1. EX-LAX CHOCOLATE PIECES [Suspect]
     Indication: CONSTIPATION
     Dosage: 4 SQUARES, QHS
     Route: 048
  2. THYROID THERAPY [Concomitant]
     Indication: HYPOTHYROIDISM

REACTIONS (3)
  - DRUG DEPENDENCE [None]
  - INCORRECT DOSE ADMINISTERED [None]
  - INCORRECT DRUG ADMINISTRATION DURATION [None]
